FAERS Safety Report 19200867 (Version 8)
Quarter: 2022Q4

REPORT INFORMATION
  Report Type: Report from Study
  Country: IT (occurrence: None)
  Receive Date: 20210430
  Receipt Date: 20221129
  Transmission Date: 20230113
  Serious: Yes (Other)
  Sender: FDA-Public Use
  Company Number: IT-ROCHE-2683848

PATIENT
  Age: 50 Year
  Sex: Female
  Weight: 72 kg

DRUGS (15)
  1. ATEZOLIZUMAB [Suspect]
     Active Substance: ATEZOLIZUMAB
     Indication: Invasive breast carcinoma
     Dosage: LAST DOSE ADMINISTERED ON 18/SEP/2020
     Route: 041
     Dates: start: 20200326, end: 20200918
  2. PERTUZUMAB [Suspect]
     Active Substance: PERTUZUMAB
     Indication: Invasive breast carcinoma
     Dosage: LAST DOSE 18/SEP/2020
     Route: 042
     Dates: start: 20200326
  3. TRASTUZUMAB [Suspect]
     Active Substance: TRASTUZUMAB
     Indication: Invasive breast carcinoma
     Dosage: LAST DOSE ADMINISTERED ON 18/SEP/2020
     Route: 042
     Dates: start: 20200326
  4. PACLITAXEL [Suspect]
     Active Substance: PACLITAXEL
     Indication: Invasive breast carcinoma
     Dosage: LAST DOSE BEFORE SAE 17/JUL/2020
     Route: 042
     Dates: start: 20200326
  5. CARBOPLATIN [Suspect]
     Active Substance: CARBOPLATIN
     Indication: Invasive breast carcinoma
     Dosage: LAST DOSE BEFORE SAE17/JUL//2020
     Route: 042
     Dates: start: 20200326
  6. CYCLOBENZAPRINE HYDROCHLORIDE [Concomitant]
     Active Substance: CYCLOBENZAPRINE HYDROCHLORIDE
     Route: 048
     Dates: start: 20210115
  7. PREGABALIN [Concomitant]
     Active Substance: PREGABALIN
     Route: 048
     Dates: start: 20200912, end: 20200929
  8. PREGABALIN [Concomitant]
     Active Substance: PREGABALIN
     Route: 048
     Dates: start: 20200930, end: 20201105
  9. PREGABALIN [Concomitant]
     Active Substance: PREGABALIN
     Route: 048
     Dates: start: 20201106, end: 20201224
  10. PREGABALIN [Concomitant]
     Active Substance: PREGABALIN
     Route: 048
     Dates: start: 20201225, end: 20210328
  11. PREGABALIN [Concomitant]
     Active Substance: PREGABALIN
     Route: 048
     Dates: start: 20210416
  12. NALOXONE HYDROCHLORIDE [Concomitant]
     Active Substance: NALOXONE HYDROCHLORIDE
     Dates: start: 20200918, end: 20210114
  13. PREDNISONE [Concomitant]
     Active Substance: PREDNISONE
     Dates: start: 20201004, end: 20201019
  14. PREDNISONE [Concomitant]
     Active Substance: PREDNISONE
     Dates: start: 20201020, end: 20201120
  15. PREDNISONE [Concomitant]
     Active Substance: PREDNISONE
     Dates: start: 20201121, end: 20201220

REACTIONS (1)
  - Synovitis [Not Recovered/Not Resolved]

NARRATIVE: CASE EVENT DATE: 20200918
